FAERS Safety Report 13555073 (Version 2)
Quarter: 2020Q3

REPORT INFORMATION
  Report Type: Report from Study
  Country: AU (occurrence: AU)
  Receive Date: 20170517
  Receipt Date: 20170622
  Transmission Date: 20201104
  Serious: Yes (Death, Hospitalization)
  Sender: FDA-Public Use
  Company Number: AU-ASTRAZENECA-2016SE34009

PATIENT
  Age: 28855 Day
  Sex: Male

DRUGS (27)
  1. METOPROLOL. [Concomitant]
     Active Substance: METOPROLOL
     Indication: HYPERTENSION
     Route: 048
     Dates: end: 20160606
  2. OMEPRAZOLE. [Concomitant]
     Active Substance: OMEPRAZOLE
     Indication: GASTROOESOPHAGEAL REFLUX DISEASE
     Route: 048
  3. POTASSIUM [Concomitant]
     Active Substance: POTASSIUM
     Indication: HYPOKALAEMIA
     Route: 048
     Dates: start: 20160203
  4. COLOXYL WITH SENNA [Concomitant]
     Active Substance: DOCUSATE SODIUM\SENNOSIDES A AND B
     Indication: CONSTIPATION PROPHYLAXIS
     Route: 048
  5. FRUSEMIDE [Concomitant]
     Active Substance: FUROSEMIDE
     Indication: OEDEMA PERIPHERAL
     Route: 048
     Dates: start: 20150701
  6. METOCLOPRAMIDE. [Concomitant]
     Active Substance: METOCLOPRAMIDE
     Indication: VOMITING
     Dosage: 10.0MG AS REQUIRED
     Route: 048
     Dates: start: 20160118
  7. PARACETAMOL [Concomitant]
     Active Substance: ACETAMINOPHEN
     Indication: BACK PAIN
     Dosage: 1.0G AS REQUIRED
     Route: 048
     Dates: start: 20151113
  8. CLEXANE [Concomitant]
     Active Substance: ENOXAPARIN SODIUM
     Indication: PULMONARY EMBOLISM
     Route: 058
     Dates: end: 20160408
  9. OXYCONTIN [Concomitant]
     Active Substance: OXYCODONE HYDROCHLORIDE
     Indication: BACK PAIN
     Route: 048
  10. METOCLOPRAMIDE. [Concomitant]
     Active Substance: METOCLOPRAMIDE
     Indication: NAUSEA
     Dosage: 10.0MG AS REQUIRED
     Route: 048
     Dates: start: 20160118
  11. MEDI4736 [Suspect]
     Active Substance: DURVALUMAB
     Indication: NON-SMALL CELL LUNG CANCER
     Dosage: 1490.0MG ONCE/SINGLE ADMINISTRATION
     Route: 042
     Dates: start: 20160212, end: 20160212
  12. ORDINE [Concomitant]
     Active Substance: MORPHINE
     Indication: BACK PAIN
     Dosage: 5.0MG AS REQUIRED
     Route: 048
     Dates: start: 20151211
  13. ENDONE [Concomitant]
     Active Substance: OXYCODONE HYDROCHLORIDE
     Indication: PAIN
     Route: 048
     Dates: start: 20160123
  14. CLEARLAX [Concomitant]
     Active Substance: POLYETHYLENE GLYCOL 3350
     Indication: CONSTIPATION PROPHYLAXIS
     Route: 048
     Dates: start: 20160116
  15. UREA. [Concomitant]
     Active Substance: UREA
     Indication: RASH MACULO-PAPULAR
     Dosage: PRN
     Route: 061
     Dates: start: 20160307
  16. MEDI4736 [Suspect]
     Active Substance: DURVALUMAB
     Indication: NON-SMALL CELL LUNG CANCER
     Dosage: 1490.0MG ONCE/SINGLE ADMINISTRATION
     Route: 042
     Dates: start: 20160311, end: 20160311
  17. MEDI4736 [Suspect]
     Active Substance: DURVALUMAB
     Indication: NON-SMALL CELL LUNG CANCER
     Dosage: 1490.0MG ONCE/SINGLE ADMINISTRATION
     Route: 042
     Dates: start: 20160504, end: 20160504
  18. TREMELIMUMAB. [Suspect]
     Active Substance: TREMELIMUMAB
     Indication: NON-SMALL CELL LUNG CANCER
     Dosage: 74.0MG ONCE/SINGLE ADMINISTRATION
     Route: 042
     Dates: start: 20160311, end: 20160311
  19. TREMELIMUMAB. [Suspect]
     Active Substance: TREMELIMUMAB
     Indication: NON-SMALL CELL LUNG CANCER
     Dosage: 74.0MG ONCE/SINGLE ADMINISTRATION
     Route: 042
     Dates: start: 20160114, end: 20160114
  20. TREMELIMUMAB. [Suspect]
     Active Substance: TREMELIMUMAB
     Indication: NON-SMALL CELL LUNG CANCER
     Dosage: 74.0MG ONCE/SINGLE ADMINISTRATION
     Route: 042
     Dates: start: 20160212, end: 20160212
  21. ORDINE [Concomitant]
     Active Substance: MORPHINE
     Indication: MUSCULOSKELETAL CHEST PAIN
     Dosage: 5.0MG AS REQUIRED
     Route: 048
     Dates: start: 20151211
  22. SORBELENE [Concomitant]
     Indication: RASH MACULO-PAPULAR
     Dosage: PRN
     Route: 061
     Dates: start: 20160310
  23. MEDI4736 [Suspect]
     Active Substance: DURVALUMAB
     Indication: NON-SMALL CELL LUNG CANCER
     Dosage: 1490.0MG ONCE/SINGLE ADMINISTRATION
     Route: 042
     Dates: start: 20160114, end: 20160114
  24. OXYCODONE [Concomitant]
     Active Substance: OXYCODONE
     Indication: BACK PAIN
     Dosage: 5.0MG AS REQUIRED
     Route: 048
     Dates: start: 20151111
  25. FRUSEMIDE [Concomitant]
     Active Substance: FUROSEMIDE
     Indication: HYPERTENSION
     Route: 048
     Dates: start: 20150701
  26. MAGMIN [Concomitant]
     Active Substance: MAGNESIUM ASPARTATE
     Indication: HYPOMAGNESAEMIA
     Route: 048
     Dates: start: 20160116
  27. MACUVISION [Concomitant]
     Indication: PROPHYLAXIS
     Route: 048
     Dates: start: 2013

REACTIONS (1)
  - Polyarthritis [Recovered/Resolved with Sequelae]

NARRATIVE: CASE EVENT DATE: 20160311
